FAERS Safety Report 24088890 (Version 3)
Quarter: 2024Q4

REPORT INFORMATION
  Report Type: Spontaneous
  Country: US (occurrence: US)
  Receive Date: 20240715
  Receipt Date: 20241209
  Transmission Date: 20250114
  Serious: No
  Sender: LUPIN
  Company Number: US-LUPIN PHARMACEUTICALS INC.-2024-05890

PATIENT

DRUGS (1)
  1. ALBUTEROL SULFATE [Suspect]
     Active Substance: ALBUTEROL SULFATE
     Indication: Chronic obstructive pulmonary disease
     Dosage: UNK (12 PUFFS DAY OR MORE)
     Dates: start: 20240621

REACTIONS (4)
  - Product expiration date issue [Unknown]
  - Wrong technique in product usage process [Unknown]
  - Product lot number issue [Unknown]
  - No adverse event [Unknown]
